FAERS Safety Report 21395194 (Version 5)
Quarter: 2022Q4

REPORT INFORMATION
  Report Type: Report from Study
  Country: US (occurrence: US)
  Receive Date: 20220930
  Receipt Date: 20221124
  Transmission Date: 20230112
  Serious: Yes (Other)
  Sender: FDA-Public Use
  Company Number: US-HORIZON THERAPEUTICS-HZN-2022-007361

PATIENT

DRUGS (15)
  1. TEPEZZA [Suspect]
     Active Substance: TEPROTUMUMAB-TRBW
     Indication: Endocrine ophthalmopathy
     Dosage: 760 MG ONCE (THEN 1520MG), EVERY 3 WEEKS
     Route: 042
     Dates: start: 20220909
  2. TEPEZZA [Suspect]
     Active Substance: TEPROTUMUMAB-TRBW
     Indication: Toxic goitre
     Dosage: 1520 MG, EVERY 3 WEEKS
     Route: 042
     Dates: start: 20220914
  3. TEPEZZA [Suspect]
     Active Substance: TEPROTUMUMAB-TRBW
     Dosage: 3RD INFUSION
     Route: 042
     Dates: start: 2022
  4. VITAMINS NOS [Concomitant]
     Active Substance: VITAMINS
  5. KCL [Concomitant]
     Active Substance: POTASSIUM CHLORIDE
  6. HYDROCHLOROTHIAZIDE [Concomitant]
     Active Substance: HYDROCHLOROTHIAZIDE
  7. PAROXETINE [Concomitant]
     Active Substance: PAROXETINE
  8. ACYCLOVIR [Concomitant]
     Active Substance: ACYCLOVIR
  9. AMLODIPINE [Concomitant]
     Active Substance: AMLODIPINE BESYLATE
  10. LISINOPRIL [Concomitant]
     Active Substance: LISINOPRIL
  11. LEVOTHYROXINE [Concomitant]
     Active Substance: LEVOTHYROXINE
  12. XIIDRA [Concomitant]
     Active Substance: LIFITEGRAST
  13. FISH OIL [Concomitant]
     Active Substance: FISH OIL
  14. MODAFINIL [Concomitant]
     Active Substance: MODAFINIL
  15. VITAMIN D3 [Concomitant]
     Active Substance: CHOLECALCIFEROL

REACTIONS (7)
  - Type 2 diabetes mellitus [Recovering/Resolving]
  - Ear discomfort [Unknown]
  - Dry mouth [Recovering/Resolving]
  - Tinnitus [Unknown]
  - Muscle spasms [Not Recovered/Not Resolved]
  - Alopecia [Recovering/Resolving]
  - Dry skin [Recovering/Resolving]

NARRATIVE: CASE EVENT DATE: 20220101
